FAERS Safety Report 24140410 (Version 1)
Quarter: 2024Q3

REPORT INFORMATION
  Report Type: Report from Study
  Country: VN (occurrence: VN)
  Receive Date: 20240726
  Receipt Date: 20240726
  Transmission Date: 20241017
  Serious: Yes (Other)
  Sender: ROCHE
  Company Number: VN-ROCHE-10000035752

PATIENT

DRUGS (3)
  1. BEVACIZUMAB [Suspect]
     Active Substance: BEVACIZUMAB
     Indication: Ovarian epithelial cancer
     Route: 065
  2. PACLITAXEL [Suspect]
     Active Substance: PACLITAXEL
     Indication: Ovarian epithelial cancer
     Route: 065
  3. CARBOPLATIN [Suspect]
     Active Substance: CARBOPLATIN
     Indication: Ovarian epithelial cancer
     Route: 065

REACTIONS (10)
  - Haemoglobin decreased [Unknown]
  - Neutropenia [Unknown]
  - Thrombocytopenia [Unknown]
  - Blood creatine increased [Unknown]
  - Nausea [Unknown]
  - Hypersensitivity [Unknown]
  - Hypertension [Unknown]
  - Neuropathy peripheral [Unknown]
  - Vomiting [Unknown]
  - Hepatic enzyme increased [Unknown]
